FAERS Safety Report 8471684-6 (Version None)
Quarter: 2012Q2

REPORT INFORMATION
  Report Type: 
  Country: None (occurrence: None)
  Receive Date: 20120627
  Receipt Date: 20120618
  Transmission Date: 20120825
  Serious: Yes (Hospitalization)
  Sender: FDA-Public Use
  Company Number: BR-GLAXOSMITHKLINE-A0974826A

PATIENT
  Sex: Female
  Weight: 47 kg

DRUGS (2)
  1. CEFUROXIME [Suspect]
     Indication: NEOPLASM
     Dosage: 500MG SINGLE DOSE
     Route: 048
     Dates: start: 20120323, end: 20120323
  2. OMEPRAZOLE [Concomitant]
     Dosage: 1TAB PER DAY
     Route: 048
     Dates: start: 20111001

REACTIONS (5)
  - INCORRECT STORAGE OF DRUG [None]
  - PRODUCT QUALITY ISSUE [None]
  - PYREXIA [None]
  - VOMITING [None]
  - DIARRHOEA [None]
